FAERS Safety Report 10251088 (Version 1)
Quarter: 2014Q2

REPORT INFORMATION
  Report Type: Report from Study
  Country: BR (occurrence: BR)
  Receive Date: 20140620
  Receipt Date: 20140620
  Transmission Date: 20141212
  Serious: Yes (Hospitalization, Other)
  Sender: FDA-Public Use
  Company Number: BR-ABBVIE-14P-020-1248043-00

PATIENT
  Sex: Male
  Weight: 73 kg

DRUGS (10)
  1. HUMIRA [Suspect]
     Indication: RHEUMATOID ARTHRITIS
     Route: 058
  2. PANTOPRAZOLE [Concomitant]
     Indication: GASTRIC DISORDER
     Route: 048
     Dates: start: 201403
  3. ATENOLOL/CHLORTHALIDONE [Concomitant]
     Indication: HYPERTENSION
     Route: 048
     Dates: start: 1999
  4. PLAGREL [Concomitant]
     Indication: CARDIAC DISORDER
     Route: 048
     Dates: start: 201403
  5. SUSTRATE [Concomitant]
     Indication: CARDIAC DISORDER
     Route: 048
     Dates: start: 201403
  6. NAPRIX [Concomitant]
     Indication: HYPERTENSION
     Route: 048
     Dates: start: 1999
  7. ACETYLSALICYLIC ACID [Concomitant]
     Indication: ANTICOAGULANT THERAPY
     Route: 048
     Dates: start: 2013
  8. CRESTOR [Concomitant]
     Indication: BLOOD CHOLESTEROL ABNORMAL
     Route: 048
     Dates: start: 2012
  9. VITA E [Concomitant]
     Indication: NERVOUS SYSTEM DISORDER
     Route: 048
     Dates: start: 2009
  10. VITA E [Concomitant]
     Indication: MUSCLE DISORDER

REACTIONS (2)
  - Ischaemia [Recovered/Resolved]
  - Arterial occlusive disease [Recovered/Resolved]
